FAERS Safety Report 7809304-3 (Version None)
Quarter: 2011Q4

REPORT INFORMATION
  Report Type: 
  Country: None (occurrence: None)
  Receive Date: 20111012
  Receipt Date: 20111003
  Transmission Date: 20120403
  Serious: Yes (Other)
  Sender: FDA-Public Use
  Company Number: JP-JNJFOC-20110908296

PATIENT
  Sex: Female

DRUGS (10)
  1. TEGRETOL [Concomitant]
     Route: 048
     Dates: start: 20110829
  2. ROHYPNOL [Concomitant]
     Route: 048
     Dates: start: 20110813, end: 20110913
  3. ZOLPIDEM [Concomitant]
     Route: 048
     Dates: start: 20110908, end: 20110913
  4. AN UNKNOWN MEDICATION [Concomitant]
     Route: 042
     Dates: start: 20110816, end: 20110830
  5. DEPAKENE [Concomitant]
     Indication: EPILEPSY
     Route: 048
     Dates: start: 20090301, end: 20110905
  6. URSO 250 [Concomitant]
     Route: 048
     Dates: start: 20110816, end: 20110830
  7. TOPIRAMATE [Suspect]
     Route: 048
     Dates: start: 20110830, end: 20110905
  8. TOPIRAMATE [Suspect]
     Route: 048
     Dates: start: 20110823, end: 20110829
  9. TOPIRAMATE [Suspect]
     Indication: EPILEPSY
     Route: 048
     Dates: start: 20110906, end: 20110912
  10. TEGRETOL [Concomitant]
     Indication: EPILEPSY
     Route: 048
     Dates: end: 20110829

REACTIONS (2)
  - HEPATITIS FULMINANT [None]
  - RENAL FAILURE ACUTE [None]
